FAERS Safety Report 6769851-2 (Version None)
Quarter: 2010Q2

REPORT INFORMATION
  Report Type: 
  Country: None (occurrence: None)
  Receive Date: 20100615
  Receipt Date: 20100609
  Transmission Date: 20101027
  Serious: Yes (Disabling)
  Sender: FDA-Public Use
  Company Number: B0659520A

PATIENT
  Sex: Male

DRUGS (1)
  1. NIQUITIN MINI LOZENGES 4MG [Suspect]

REACTIONS (1)
  - HICCUPS [None]
